FAERS Safety Report 6998834-2 (Version None)
Quarter: 2010Q3

REPORT INFORMATION
  Report Type: 
  Country: None (occurrence: None)
  Receive Date: 20100920
  Receipt Date: 20091022
  Transmission Date: 20110219
  Serious: Yes (Other)
  Sender: FDA-Public Use
  Company Number: US-ASTRAZENECA-2007UW01717

PATIENT
  Age: 70 Year
  Sex: Female
  Weight: 81.2 kg

DRUGS (4)
  1. SEROQUEL [Suspect]
     Indication: DEPRESSION
     Route: 048
     Dates: start: 20020208, end: 20060401
  2. SEROQUEL [Suspect]
     Indication: ANXIETY
     Route: 048
     Dates: start: 20020208, end: 20060401
  3. RISPERDAL [Concomitant]
     Indication: DEPRESSION
  4. RISPERDAL [Concomitant]
     Indication: ANXIETY

REACTIONS (2)
  - DIABETES MELLITUS [None]
  - PANCREATITIS [None]
